FAERS Safety Report 7984856-1 (Version None)
Quarter: 2011Q4

REPORT INFORMATION
  Report Type: 
  Country: None (occurrence: None)
  Receive Date: 20111216
  Receipt Date: 20111024
  Transmission Date: 20120403
  Serious: No
  Sender: FDA-Public Use
  Company Number: US-ALLERGAN-1112799US

PATIENT
  Age: 44 Year
  Sex: Male

DRUGS (1)
  1. LATISSE [Suspect]
     Indication: GROWTH OF EYELASHES
     Dosage: 1 GTT, QHS
     Route: 061
     Dates: start: 20110913, end: 20110914

REACTIONS (5)
  - POOR QUALITY SLEEP [None]
  - BLEPHARITIS [None]
  - EYELID EXFOLIATION [None]
  - HYPERSENSITIVITY [None]
  - ERYTHEMA OF EYELID [None]
